FAERS Safety Report 25037894 (Version 1)
Quarter: 2025Q1

REPORT INFORMATION
  Report Type: Spontaneous
  Country: US (occurrence: US)
  Receive Date: 20250304
  Receipt Date: 20250304
  Transmission Date: 20250409
  Serious: Yes (Other)
  Sender: BRISTOL-MYERS SQUIBB COMPANY
  Company Number: US-BRISTOL-MYERS SQUIBB COMPANY-2025-029987

PATIENT
  Age: 72 Year
  Sex: Male

DRUGS (2)
  1. POMALYST [Suspect]
     Active Substance: POMALIDOMIDE
     Indication: Plasma cell myeloma in remission
     Dosage: FREQUENCY: QD FOR 21 DAYS ON AND 7 DAYS OFF
     Route: 048
     Dates: start: 202502
  2. POMALYST [Suspect]
     Active Substance: POMALIDOMIDE
     Dosage: FREQUENCY: QD FOR 21 DAYS ON AND 7 DAYS OFF
     Route: 048
     Dates: end: 202502

REACTIONS (1)
  - Sinus disorder [Unknown]
